FAERS Safety Report 22323141 (Version 1)
Quarter: 2023Q2

REPORT INFORMATION
  Report Type: Spontaneous
  Country: US (occurrence: US)
  Receive Date: 20230516
  Receipt Date: 20230516
  Transmission Date: 20230721
  Serious: Yes (Hospitalization)
  Sender: FDA-Public Use
  Company Number: US-MACLEODS PHARMA EU LTD-MAC2023041292

PATIENT

DRUGS (1)
  1. OLMESARTAN [Suspect]
     Active Substance: OLMESARTAN
     Indication: Hypertension
     Dosage: UNK
     Route: 065

REACTIONS (4)
  - Ischaemic enteritis [Recovered/Resolved]
  - Ileus [Recovered/Resolved]
  - Intestinal perforation [Recovered/Resolved]
  - Gastrointestinal disorder [Recovered/Resolved]
